FAERS Safety Report 4619133-X (Version None)
Quarter: 2005Q1

REPORT INFORMATION
  Report Type: 
  Country: None (occurrence: None)
  Receive Date: 20050325
  Receipt Date: 20050217
  Transmission Date: 20050727
  Serious: Yes (Other)
  Sender: FDA-Public Use
  Company Number: US-GLAXOSMITHKLINE-A0546075A

PATIENT
  Age: 21 Year
  Sex: Male
  Weight: 59.1 kg

DRUGS (3)
  1. WELLBUTRIN XL [Suspect]
     Indication: DEPRESSION
     Route: 048
     Dates: start: 20000101, end: 20050205
  2. CONCERTA [Concomitant]
     Indication: ATTENTION DEFICIT/HYPERACTIVITY DISORDER
     Dosage: 108MG IN THE MORNING
     Route: 048
  3. DEXTROSTAT [Concomitant]
     Indication: ATTENTION DEFICIT/HYPERACTIVITY DISORDER
     Dosage: 2TAB PER DAY
     Route: 048

REACTIONS (11)
  - BLOOD CAFFEINE INCREASED [None]
  - DRUG TOXICITY [None]
  - FATIGUE [None]
  - GRAND MAL CONVULSION [None]
  - HYPERTONIA [None]
  - LOSS OF CONSCIOUSNESS [None]
  - POSTICTAL STATE [None]
  - SLEEP DISORDER [None]
  - STRESS [None]
  - SYNCOPE [None]
  - WEIGHT DECREASED [None]
